FAERS Safety Report 4805867-0 (Version None)
Quarter: 2005Q4

REPORT INFORMATION
  Report Type: 
  Country: None (occurrence: None)
  Receive Date: 20051018
  Receipt Date: 20050805
  Transmission Date: 20060501
  Serious: Yes (Other)
  Sender: FDA-Public Use
  Company Number: CC04-035

PATIENT
  Sex: Male

DRUGS (4)
  1. ALBUTEROL [Suspect]
     Indication: ASTHMA
     Dosage: INHALATION, 3X DAILY, CHRONIC
     Route: 055
  2. LIPITOR [Concomitant]
  3. FOSINOPRIL SODIUM [Concomitant]
  4. METAPROLOL TARTRATE [Concomitant]

REACTIONS (1)
  - DRUG INEFFECTIVE [None]
